FAERS Safety Report 6881815-7 (Version None)
Quarter: 2010Q3

REPORT INFORMATION
  Report Type: 
  Country: None (occurrence: None)
  Receive Date: 20100728
  Receipt Date: 20100728
  Transmission Date: 20110219
  Serious: Yes (Hospitalization)
  Sender: FDA-Public Use
  Company Number: None

PATIENT
  Age: 54 Year
  Sex: Female
  Weight: 92.9874 kg

DRUGS (6)
  1. VICTOZA [Suspect]
     Indication: DIABETES MELLITUS INADEQUATE CONTROL
     Dosage: 0.6 MG DAILY SQ
     Route: 058
     Dates: start: 20100713, end: 20100719
  2. GLUMETZA [Concomitant]
  3. SIMVASTATIN [Concomitant]
  4. CYMBALTA [Concomitant]
  5. VALTREX [Concomitant]
  6. HYDROCHLOROTHIAZIDE [Concomitant]

REACTIONS (2)
  - NAUSEA [None]
  - VOMITING [None]
